FAERS Safety Report 9836744 (Version 4)
Quarter: 2014Q1

REPORT INFORMATION
  Report Type: Report from Study
  Country: PT (occurrence: PT)
  Receive Date: 20140123
  Receipt Date: 20140227
  Transmission Date: 20141002
  Serious: Yes (Other)
  Sender: FDA-Public Use
  Company Number: PHHY2013PT124257

PATIENT
  Age: 36 Year
  Sex: Female

DRUGS (1)
  1. EXTAVIA [Suspect]
     Indication: MULTIPLE SCLEROSIS
     Dosage: 250 UG, QOD
     Route: 058
     Dates: start: 20130919

REACTIONS (4)
  - Multiple sclerosis [Unknown]
  - Proteus test positive [Unknown]
  - Genital burning sensation [Recovered/Resolved]
  - Pruritus genital [Recovered/Resolved]
